FAERS Safety Report 4574846-3 (Version None)
Quarter: 2005Q1

REPORT INFORMATION
  Report Type: 
  Country: None (occurrence: None)
  Receive Date: 20050208
  Receipt Date: 20040715
  Transmission Date: 20050727
  Serious: Yes (Life-Threatening, Hospitalization)
  Sender: FDA-Public Use
  Company Number: US-GLAXOSMITHKLINE-A0518525A

PATIENT
  Age: 57 Year
  Sex: Male

DRUGS (5)
  1. PAXIL [Suspect]
     Indication: DEPRESSION
     Dosage: 25MG PER DAY
     Route: 048
  2. CRESTOR [Concomitant]
  3. PENICILLIN G [Concomitant]
  4. TRAZODONE [Concomitant]
  5. CLARITIN [Concomitant]

REACTIONS (1)
  - PANCYTOPENIA [None]
